FAERS Safety Report 7595095-0 (Version None)
Quarter: 2011Q3

REPORT INFORMATION
  Report Type: 
  Country: None (occurrence: None)
  Receive Date: 20110707
  Receipt Date: 20110705
  Transmission Date: 20111222
  Serious: Yes (Other)
  Sender: FDA-Public Use
  Company Number: US-PFIZER INC-2011150382

PATIENT
  Sex: Female
  Weight: 69.388 kg

DRUGS (3)
  1. CHANTIX [Suspect]
     Indication: SMOKING CESSATION THERAPY
     Dosage: 1 MG, 2X/DAY
     Route: 048
     Dates: start: 20110501, end: 20110601
  2. CHANTIX [Suspect]
     Dosage: 0.5 MG, 1X/DAY
     Route: 048
     Dates: start: 20110601, end: 20110601
  3. LISINOPRIL [Concomitant]
     Indication: HYPERTENSION
     Dosage: UNK

REACTIONS (8)
  - SWOLLEN TONGUE [None]
  - MALAISE [None]
  - DYSGEUSIA [None]
  - TONGUE DISORDER [None]
  - NAUSEA [None]
  - TONGUE BLISTERING [None]
  - BURNING SENSATION [None]
  - PHARYNGEAL OEDEMA [None]
